FAERS Safety Report 24461601 (Version 1)
Quarter: 2024Q4

REPORT INFORMATION
  Report Type: Report from Study
  Country: DE (occurrence: DE)
  Receive Date: 20241018
  Receipt Date: 20241018
  Transmission Date: 20250115
  Serious: No
  Sender: ROCHE
  Company Number: DE-ROCHE-3530532

PATIENT
  Age: 62 Year
  Sex: Female

DRUGS (4)
  1. RITUXIMAB [Suspect]
     Active Substance: RITUXIMAB
     Indication: Neuromyelitis optica spectrum disorder
     Dosage: ON 21/09/2023 RECEIVED SUBSEQUENT DOSE OF RITUXIMAB, ON IN 05/MAR/2024, RECEIVED SUBSEQUENT AND MOST
     Route: 041
     Dates: start: 20230907, end: 20230909
  2. BACLOFEN [Concomitant]
     Active Substance: BACLOFEN
  3. PREGABALIN [Concomitant]
     Active Substance: PREGABALIN
  4. METOPROLOL [Concomitant]
     Active Substance: METOPROLOL

REACTIONS (3)
  - Off label use [Unknown]
  - Fatigue [Recovered/Resolved]
  - Weight increased [Not Recovered/Not Resolved]

NARRATIVE: CASE EVENT DATE: 20230907
